FAERS Safety Report 8492669 (Version 2)
Quarter: 2012Q4

REPORT INFORMATION
  Report Type: 
  Country: CZ (occurrence: CZ)
  Receive Date: 20120403
  Receipt Date: 20121123
  Transmission Date: 20130627
  Serious: Yes (Disabling, Other)
  Sender: FDA-Public Use
  Company Number: CZ-B.I. PHARMACEUTICALS,INC./RIDGEFIELD-2012-AP-00200AP

PATIENT
  Age: 49 Year
  Sex: Female

DRUGS (3)
  1. MICARDIS [Suspect]
     Indication: HYPERTENSION
     Dosage: 40 mg
     Route: 048
     Dates: start: 20120214
  2. MICARDISPLUS [Suspect]
     Indication: HYPERTENSION
     Dosage: 80/12.5 mg - 1 tablet per day
  3. CONCOR 2.5MG [Concomitant]
     Indication: HYPERTENSION
     Dosage: 2.5 mg

REACTIONS (4)
  - Myalgia [Unknown]
  - Muscle spasms [Unknown]
  - Back pain [Unknown]
  - Neck pain [Unknown]
